FAERS Safety Report 21709431 (Version 1)
Quarter: 2022Q4

REPORT INFORMATION
  Report Type: Spontaneous
  Country: CN (occurrence: CN)
  Receive Date: 20221210
  Receipt Date: 20221210
  Transmission Date: 20230113
  Serious: Yes (Death, Life-Threatening, Other)
  Sender: FDA-Public Use
  Company Number: CN-AMGEN-CHNSP2022211910

PATIENT

DRUGS (4)
  1. BLINCYTO [Suspect]
     Active Substance: BLINATUMOMAB
     Indication: B precursor type acute leukaemia
     Dosage: UNK
     Route: 040
     Dates: start: 202108
  2. DEXAMETHASONE [Concomitant]
     Active Substance: DEXAMETHASONE
     Indication: Product used for unknown indication
     Dosage: UNK
     Route: 065
  3. BUSULFAN [Concomitant]
     Active Substance: BUSULFAN
     Indication: Product used for unknown indication
     Dosage: UNK
     Route: 065
  4. CYCLOPHOSPHAMIDE [Concomitant]
     Active Substance: CYCLOPHOSPHAMIDE
     Indication: Product used for unknown indication
     Dosage: UNK
     Route: 065

REACTIONS (29)
  - Acute hepatic failure [Fatal]
  - Hepatic encephalopathy [Fatal]
  - Septic shock [Fatal]
  - Neutropenia [Unknown]
  - Leukopenia [Unknown]
  - Thrombocytopenia [Unknown]
  - Hypertension [Unknown]
  - Anaemia [Unknown]
  - Neuropathy peripheral [Unknown]
  - Acute lymphocytic leukaemia recurrent [Unknown]
  - Acute lymphocytic leukaemia refractory [Unknown]
  - Renal impairment [Unknown]
  - Hypokalaemia [Unknown]
  - Cytokine release syndrome [Unknown]
  - Blood fibrinogen decreased [Unknown]
  - Hepatic function abnormal [Unknown]
  - Abdominal discomfort [Unknown]
  - Activated partial thromboplastin time prolonged [Unknown]
  - Papule [Unknown]
  - Fatigue [Unknown]
  - Minimal residual disease [Unknown]
  - Gene mutation [Unknown]
  - Nausea [Unknown]
  - Headache [Unknown]
  - Therapy partial responder [Unknown]
  - Conjunctivitis [Unknown]
  - Drug ineffective [Unknown]
  - Bone pain [Unknown]
  - Paraesthesia [Unknown]
